FAERS Safety Report 6809381-2 (Version None)
Quarter: 2010Q2

REPORT INFORMATION
  Report Type: 
  Country: None (occurrence: None)
  Receive Date: 20100630
  Receipt Date: 20100622
  Transmission Date: 20101027
  Serious: Yes (Death)
  Sender: FDA-Public Use
  Company Number: ES-WYE-G06308810

PATIENT
  Age: 18 Year
  Sex: Female

DRUGS (4)
  1. TYGACIL [Suspect]
     Indication: PNEUMONIA
     Dates: start: 20100608, end: 20100614
  2. CLOXACILLIN [Concomitant]
     Indication: PNEUMONIA
     Dosage: UNKNOWN
     Dates: end: 20100608
  3. THIOPENTAL SODIUM [Concomitant]
     Indication: INTRACRANIAL PRESSURE INCREASED
     Dosage: UNKNOWM
  4. COLISTIN [Concomitant]
     Indication: PNEUMONIA
     Dosage: UNKNOWN
     Dates: start: 20100608

REACTIONS (3)
  - DRUG INEFFECTIVE [None]
  - SEPTIC SHOCK [None]
  - STAPHYLOCOCCAL INFECTION [None]
